FAERS Safety Report 24634272 (Version 3)
Quarter: 2024Q4

REPORT INFORMATION
  Report Type: Spontaneous
  Country: US (occurrence: US)
  Receive Date: 20241119
  Receipt Date: 20241128
  Transmission Date: 20250115
  Serious: No
  Sender: SANOFI AVENTIS
  Company Number: US-SANOFI-02293617

PATIENT
  Age: 64 Year
  Sex: Female

DRUGS (5)
  1. LANTUS [Suspect]
     Active Substance: INSULIN GLARGINE
     Indication: Diabetes mellitus
     Dosage: 10 U, QD
     Dates: start: 20240915, end: 2024
  2. LANTUS [Suspect]
     Active Substance: INSULIN GLARGINE
     Dosage: 12 U, QD
     Dates: start: 2024, end: 2024
  3. LANTUS [Suspect]
     Active Substance: INSULIN GLARGINE
     Dosage: 14 U, QD
     Dates: start: 2024, end: 2024
  4. LANTUS [Suspect]
     Active Substance: INSULIN GLARGINE
     Dosage: 16 U, QD
     Dates: start: 202410
  5. GLIPIZIDE [Concomitant]
     Active Substance: GLIPIZIDE

REACTIONS (6)
  - Injection site bruising [Unknown]
  - Injection site haemorrhage [Unknown]
  - Wrong technique in device usage process [Unknown]
  - Hunger [Unknown]
  - Therapeutic product effect decreased [Unknown]
  - Product storage error [Unknown]

NARRATIVE: CASE EVENT DATE: 20240101
